FAERS Safety Report 23257958 (Version 1)
Quarter: 2023Q4

REPORT INFORMATION
  Report Type: Spontaneous
  Country: US (occurrence: US)
  Receive Date: 20231204
  Receipt Date: 20231204
  Transmission Date: 20240110
  Serious: Yes (Hospitalization)
  Sender: FDA-Public Use
  Company Number: US-BEXIMCO-2023BEX00077

PATIENT
  Age: 82 Year
  Sex: Female

DRUGS (1)
  1. METFORMIN HYDROCHLORIDE [Suspect]
     Active Substance: METFORMIN HYDROCHLORIDE
     Indication: Type 2 diabetes mellitus
     Dosage: UNK

REACTIONS (3)
  - Ketoacidosis [Recovered/Resolved]
  - Lactic acidosis [Recovered/Resolved]
  - Toxicity to various agents [Recovered/Resolved]
